FAERS Safety Report 4823230-3 (Version None)
Quarter: 2005Q4

REPORT INFORMATION
  Report Type: 
  Country: None (occurrence: None)
  Receive Date: 20051107
  Receipt Date: 20051027
  Transmission Date: 20060501
  Serious: Yes (Other)
  Sender: FDA-Public Use
  Company Number: GXBR2005US01481

PATIENT
  Age: 49 Year
  Sex: Male
  Weight: 107.5 kg

DRUGS (7)
  1. RIBAVIRIN [Suspect]
     Indication: HEPATITIS C
     Dosage: 1200 MG, QD, ORAL
     Route: 048
     Dates: start: 20050109, end: 20050914
  2. PEG-INTRON [Suspect]
     Indication: HEPATITIS C
     Dosage: 150 UG, QW, SUBCUTANEOUS
     Route: 058
     Dates: start: 20050109, end: 20050914
  3. CENTRUM SILVER (ASCORBIC ACID, CALCIUM, MINERALS NOS, RETINOL, TOCOPHE [Concomitant]
  4. MOTRIN IB (IBUPROFEN) [Concomitant]
  5. TYLENOL PM, EXTRA STRENGTH (DIPHENHYDRAMINE, PARACETAMOL) [Concomitant]
  6. NEUPOGEN [Concomitant]
  7. PREDNISONE (PREDNSIONE) [Concomitant]

REACTIONS (4)
  - ARTHRALGIA [None]
  - CELLULITIS [None]
  - ERYTHEMA NODOSUM [None]
  - THERAPY NON-RESPONDER [None]
